FAERS Safety Report 22032542 (Version 1)
Quarter: 2023Q1

REPORT INFORMATION
  Report Type: Spontaneous
  Country: US (occurrence: US)
  Receive Date: 20230224
  Receipt Date: 20230224
  Transmission Date: 20230418
  Serious: No
  Sender: FDA-Public Use
  Company Number: US-Stemline Therapeutics, Inc.-2022ST000470

PATIENT
  Age: 77 Year

DRUGS (1)
  1. ELZONRIS [Suspect]
     Active Substance: TAGRAXOFUSP-ERZS
     Indication: Blastic plasmacytoid dendritic cell neoplasia
     Dosage: FIRST CYCLE
     Route: 042
     Dates: start: 20221215, end: 20221217

REACTIONS (1)
  - Inappropriate schedule of product administration [Unknown]
